FAERS Safety Report 8019828-4 (Version None)
Quarter: 2012Q1

REPORT INFORMATION
  Report Type: 
  Country: None (occurrence: None)
  Receive Date: 20120103
  Receipt Date: 20111209
  Transmission Date: 20120608
  Serious: Yes (Other)
  Sender: FDA-Public Use
  Company Number: US-AMGEN-USASP2011046997

PATIENT
  Age: 63 Year
  Sex: Female
  Weight: 56.689 kg

DRUGS (5)
  1. CALCIUM ACETATE [Concomitant]
  2. MIRAPEX [Concomitant]
  3. PROLIA [Suspect]
     Indication: OSTEOPOROSIS POSTMENOPAUSAL
     Dosage: 60 MG, Q6MO
     Route: 058
     Dates: start: 20110831, end: 20110831
  4. CYMBALTA [Concomitant]
  5. VITAMIN D [Concomitant]

REACTIONS (6)
  - APHAGIA [None]
  - BACK PAIN [None]
  - MUSCULAR WEAKNESS [None]
  - DECREASED APPETITE [None]
  - MOBILITY DECREASED [None]
  - INCONTINENCE [None]
